FAERS Safety Report 24013719 (Version 1)
Quarter: 2024Q2

REPORT INFORMATION
  Report Type: Spontaneous
  Country: CA (occurrence: CA)
  Receive Date: 20240626
  Receipt Date: 20240626
  Transmission Date: 20240716
  Serious: Yes (Hospitalization, Other)
  Sender: FDA-Public Use
  Company Number: CA-002147023-NVSC2023CA118601

PATIENT
  Age: 28 Year
  Sex: Female

DRUGS (2)
  1. LABETALOL [Suspect]
     Active Substance: LABETALOL\LABETALOL HYDROCHLORIDE
     Indication: Pre-eclampsia
     Dosage: UNK
     Route: 048
  2. NIFEDIPINE [Suspect]
     Active Substance: NIFEDIPINE
     Indication: Pre-eclampsia
     Dosage: 30 MG, BID (TABLET (EXTENDED- RELEASE)
     Route: 065

REACTIONS (3)
  - Premature delivery [Unknown]
  - Therapeutic product ineffective [Unknown]
  - Maternal exposure during pregnancy [Unknown]
